FAERS Safety Report 9241139 (Version 1)
Quarter: 2013Q1

REPORT INFORMATION
  Report Type: Spontaneous
  Country: US (occurrence: None)
  Receive Date: 20121120
  Receipt Date: 20121120
  Transmission Date: 20140127
  Serious: No
  Sender: FDA-Public Use
  Company Number: 1000039165

PATIENT
  Age: 21 Year
  Sex: Female

DRUGS (3)
  1. VIIBRYD [Suspect]
     Indication: DEPRESSION
     Dosage: 10 MG, 1 IN  1 D
     Route: 048
     Dates: start: 201207, end: 2012
  2. PANTOPRAZOLE [Concomitant]
  3. BENADRYL [Concomitant]

REACTIONS (2)
  - Paraesthesia [None]
  - Sleep terror [None]
